FAERS Safety Report 12292614 (Version 1)
Quarter: 2016Q2

REPORT INFORMATION
  Report Type: Report from Study
  Country: US (occurrence: US)
  Receive Date: 20160421
  Receipt Date: 20160421
  Transmission Date: 20160815
  Serious: No
  Sender: FDA-Public Use
  Company Number: US-AMGEN-USASL2016020621

PATIENT
  Age: 70 Year
  Sex: Male

DRUGS (1)
  1. REPATHA [Suspect]
     Active Substance: EVOLOCUMAB
     Indication: BLOOD CHOLESTEROL ABNORMAL
     Dosage: 140 MG, Q2WK
     Route: 065
     Dates: start: 201601

REACTIONS (6)
  - Muscular weakness [Unknown]
  - Neuropathy peripheral [Unknown]
  - Dyskinesia [Unknown]
  - Limb discomfort [Recovering/Resolving]
  - Muscle spasms [Unknown]
  - Gait disturbance [Unknown]
